FAERS Safety Report 11065095 (Version 2)
Quarter: 2015Q2

REPORT INFORMATION
  Report Type: Spontaneous
  Country: US (occurrence: US)
  Receive Date: 20150424
  Receipt Date: 20150525
  Transmission Date: 20150821
  Serious: No
  Sender: FDA-Public Use
  Company Number: US-JNJFOC-20130917809

PATIENT
  Age: 47 Year
  Sex: Female
  Weight: 72.58 kg

DRUGS (2)
  1. ADIPEX-P [Concomitant]
     Active Substance: PHENTERMINE HYDROCHLORIDE
     Indication: WEIGHT DECREASED
     Route: 048
     Dates: start: 201309
  2. TOPIRAMATE. [Suspect]
     Active Substance: TOPIRAMATE
     Indication: WEIGHT DECREASED
     Route: 048
     Dates: start: 201309

REACTIONS (2)
  - Product use issue [Not Recovered/Not Resolved]
  - Paraesthesia [Not Recovered/Not Resolved]

NARRATIVE: CASE EVENT DATE: 201309
